FAERS Safety Report 20569846 (Version 1)
Quarter: 2022Q1

REPORT INFORMATION
  Report Type: Spontaneous
  Country: US (occurrence: US)
  Receive Date: 20220309
  Receipt Date: 20220309
  Transmission Date: 20220424
  Serious: No
  Sender: FDA-Public Use
  Company Number: US-HORIZON THERAPEUTICS-HZN-2021-000872

PATIENT
  Age: 77 Year
  Sex: Male

DRUGS (2)
  1. PENNSAID [Suspect]
     Active Substance: DICLOFENAC SODIUM
     Indication: Arthralgia
     Dosage: ONCE ON EVENING OF 26-FEB-2021
     Route: 061
     Dates: start: 20210226, end: 20210226
  2. PENNSAID [Suspect]
     Active Substance: DICLOFENAC SODIUM
     Dosage: 1 APPLICATION 2 TIMES DAILY
     Route: 061
     Dates: start: 20210227, end: 20210228

REACTIONS (3)
  - Rash erythematous [Not Recovered/Not Resolved]
  - Rash pruritic [Not Recovered/Not Resolved]
  - Rash vesicular [Not Recovered/Not Resolved]

NARRATIVE: CASE EVENT DATE: 20210228
